FAERS Safety Report 18941847 (Version 4)
Quarter: 2023Q1

REPORT INFORMATION
  Report Type: Report from Study
  Country: FR (occurrence: FR)
  Receive Date: 20210225
  Receipt Date: 20230201
  Transmission Date: 20230417
  Serious: Yes (Death)
  Sender: FDA-Public Use
  Company Number: FR-PFIZER INC-2021189546

PATIENT
  Age: 77 Year
  Sex: Female
  Weight: 95 kg

DRUGS (6)
  1. IBRANCE [Suspect]
     Active Substance: PALBOCICLIB
     Dosage: 100 MG
  2. LETROZOLE [Suspect]
     Active Substance: LETROZOLE
  3. FUROSEMIDE [Concomitant]
     Active Substance: FUROSEMIDE
     Dosage: UNK
     Dates: start: 20170317
  4. SIMVASTATIN [Concomitant]
     Active Substance: SIMVASTATIN
  5. OXYCODONE [Concomitant]
     Active Substance: OXYCODONE
     Indication: Pain
  6. INNOHEP [Concomitant]
     Active Substance: TINZAPARIN SODIUM
     Route: 058

REACTIONS (1)
  - Neoplasm progression [Fatal]

NARRATIVE: CASE EVENT DATE: 20201023
